FAERS Safety Report 6077797-0 (Version None)
Quarter: 2009Q1

REPORT INFORMATION
  Report Type: 
  Country: None (occurrence: None)
  Receive Date: 20090213
  Receipt Date: 20090202
  Transmission Date: 20090719
  Serious: Yes (Hospitalization)
  Sender: FDA-Public Use
  Company Number: NL-PFIZER INC-2009164729

PATIENT

DRUGS (15)
  1. INSPRA [Suspect]
     Indication: CARDIAC FAILURE
     Dosage: 50 MG, 1X/DAY
     Route: 048
     Dates: start: 20050922, end: 20081223
  2. INSPRA [Suspect]
     Dosage: 50 MG, 2X/DAY
     Route: 048
     Dates: start: 20081224
  3. SYMBICORT [Concomitant]
     Dosage: 2 PUFFS/DAILY
     Route: 002
     Dates: start: 20050614
  4. METOPROLOL SUCCINATE [Concomitant]
     Dosage: 100 MG, 1X/DAY
     Route: 048
  5. LANOXIN [Concomitant]
     Dosage: 0.25 MG, 1X/DAY
     Route: 048
  6. ALLOPURINOL [Concomitant]
     Dosage: 300 MG, 1X/DAY
     Route: 048
     Dates: start: 20081117
  7. FERRO-GRADUMET [Concomitant]
     Dosage: 105 MG, 1X/DAY
     Route: 048
     Dates: start: 20081219
  8. FERROUS FUMARATE [Concomitant]
     Dosage: 200 MG, 3X/DAY
     Route: 048
     Dates: start: 20080124, end: 20081219
  9. METFORMIN HYDROCHLORIDE [Concomitant]
     Dosage: 500 MG, 1X/DAY
     Route: 048
     Dates: start: 20070907
  10. DIOVANE [Concomitant]
     Dosage: 160 MG, UNK
     Route: 048
     Dates: start: 20050922, end: 20081223
  11. DIOVANE [Concomitant]
     Dosage: 160 MG, 2X/DAY
     Dates: start: 20081224
  12. BUMETANIDE [Concomitant]
     Dosage: 2.5 MG, UNK
     Route: 048
     Dates: start: 20050818
  13. ACENOCOUMAROL [Concomitant]
     Dosage: UNK
     Route: 048
  14. ATROVENT [Concomitant]
     Dosage: UNK
     Route: 002
  15. OTHER DERMATOLOGICAL PREPARATIONS [Concomitant]
     Dosage: UNK
     Route: 061
     Dates: start: 20060227

REACTIONS (2)
  - GYNAECOMASTIA [None]
  - THROMBOSIS [None]
